FAERS Safety Report 9468420 (Version 3)
Quarter: 2014Q1

REPORT INFORMATION
  Report Type: Spontaneous
  Country: US (occurrence: US)
  Receive Date: 20130821
  Receipt Date: 20140205
  Transmission Date: 20141002
  Serious: Yes (Other)
  Sender: FDA-Public Use
  Company Number: US-PFIZER INC-2013239218

PATIENT
  Age: 62 Year
  Sex: Female

DRUGS (28)
  1. XELJANZ [Suspect]
     Indication: RHEUMATOID ARTHRITIS
     Dosage: 5 MG, 2X/DAY
     Route: 048
     Dates: start: 20130610, end: 20130625
  2. XELJANZ [Suspect]
     Dosage: 5 MG, 1X/DAY
     Route: 048
     Dates: start: 20130625, end: 20130705
  3. XELJANZ [Suspect]
     Dosage: 5 MG, 2X/DAY
     Route: 048
     Dates: start: 201306
  4. XELJANZ [Suspect]
     Dosage: 5 MG, 2X/DAY
     Route: 048
     Dates: start: 20130705
  5. NIFEDIPINE [Suspect]
     Dosage: 30 MG, 1X/DAY
     Route: 048
     Dates: start: 20130528, end: 20130716
  6. AMBIEN [Suspect]
     Dosage: 5 MG, 1X/DAY (AT HS)
     Route: 048
     Dates: start: 2004
  7. AMBIEN [Suspect]
     Dosage: UNK
     Route: 048
     Dates: start: 20130417
  8. CLIMARA [Suspect]
     Dosage: UNK
     Dates: end: 201309
  9. PLAQUENIL [Suspect]
     Dosage: UNK
  10. PREDNISONE [Concomitant]
     Dosage: 7 MG, 1X/DAY
     Dates: start: 2004
  11. LISINOPRIL [Concomitant]
     Dosage: 2.5 MG, 1X/DAY
     Dates: start: 20121130
  12. METOPROLOL [Concomitant]
     Dosage: 12.5 MG, 1X/DAY
     Dates: start: 20121130
  13. HYDROCHLOROTHIAZIDE [Concomitant]
     Dosage: UNK
  14. VOLTAREN [Concomitant]
     Dosage: UNK
  15. FLUVIRIN [Concomitant]
     Dosage: UNK
  16. FOLIC ACID [Concomitant]
     Dosage: UNK
  17. HYDROCODONE [Concomitant]
     Dosage: UNK
  18. PROMETHEGAN [Concomitant]
     Dosage: UNK
  19. ZOLPIDEM [Concomitant]
     Dosage: UNK
  20. IBUPROFEN [Concomitant]
     Dosage: UNK
  21. ADVIL [Concomitant]
     Dosage: UNK
  22. ALLEGRA [Concomitant]
     Dosage: UNK
  23. CITRACAL + D [Concomitant]
     Dosage: UNK
  24. METHOCARBAMOL [Concomitant]
     Dosage: UNK
  25. NIFEDICAL [Concomitant]
     Dosage: UNK
  26. PRILOSEC [Concomitant]
     Dosage: UNK
  27. VITAMIN A [Concomitant]
     Dosage: UNK
  28. VITAMIN D [Concomitant]
     Dosage: UNK

REACTIONS (9)
  - Arthralgia [Not Recovered/Not Resolved]
  - Gait disturbance [Not Recovered/Not Resolved]
  - Pain in extremity [Not Recovered/Not Resolved]
  - Weight increased [Not Recovered/Not Resolved]
  - Respiratory tract congestion [Not Recovered/Not Resolved]
  - Cough [Unknown]
  - Hot flush [Not Recovered/Not Resolved]
  - Swelling [Recovering/Resolving]
  - Insomnia [Recovered/Resolved]
